FAERS Safety Report 8031111-X (Version None)
Quarter: 2012Q1

REPORT INFORMATION
  Report Type: 
  Country: None (occurrence: None)
  Receive Date: 20120109
  Receipt Date: 20111226
  Transmission Date: 20120608
  Serious: Yes (Hospitalization)
  Sender: FDA-Public Use
  Company Number: JP-ROCHE-773669

PATIENT
  Sex: Female

DRUGS (26)
  1. MIYA BM [Concomitant]
     Dosage: DOSE FORM: PERORAL AGENT
     Route: 048
  2. FERROUS CITRATE [Concomitant]
     Dosage: DOSE FORM: PERORAL AGENT
     Route: 048
  3. ONEALFA [Concomitant]
     Dosage: DOSE FORM: PERORAL AGENT
     Route: 048
  4. DEXAMETHASONE [Concomitant]
     Route: 041
     Dates: start: 20110204, end: 20110228
  5. PREDNISOLONE [Concomitant]
     Dosage: DOSE FORM: PERORAL AGENT
     Route: 048
     Dates: start: 20110326, end: 20110329
  6. DIAMOX SRC [Concomitant]
     Dosage: DOSE FORM: PERORAL AGENT
     Route: 050
  7. TRUSOPT [Concomitant]
     Dosage: DOSAGE UNCERTAIN
     Route: 047
  8. ACTONEL [Concomitant]
     Route: 048
  9. ACTEMRA [Suspect]
     Indication: JUVENILE ARTHRITIS
     Route: 041
     Dates: start: 20110121, end: 20110128
  10. ACTEMRA [Suspect]
     Route: 041
     Dates: start: 20110210, end: 20110404
  11. ACTEMRA [Suspect]
     Route: 041
     Dates: start: 20110411, end: 20110418
  12. PREDNISOLONE [Concomitant]
     Dosage: DOSE FORM: PERORAL AGENT
     Route: 048
     Dates: start: 20110330, end: 20110404
  13. DEXAMETHASONE [Concomitant]
     Route: 041
     Dates: start: 20110109, end: 20110203
  14. PREDNISOLONE [Concomitant]
     Dosage: DOSE FORM: PERORAL AGENT
     Route: 048
     Dates: start: 20110301, end: 20110316
  15. PREDNISOLONE [Concomitant]
     Dosage: DOSE FORM: PERORAL AGENT
     Route: 048
     Dates: start: 20110317, end: 20110325
  16. POTASSIUM GLUCONATE TAB [Concomitant]
     Dosage: DOSE FORM: PERORAL AGENT
     Route: 048
  17. DIPIVEFRIN HCL [Concomitant]
     Dosage: DOSAGE UNCERTAIN
     Route: 047
  18. ACTEMRA [Suspect]
     Route: 041
     Dates: start: 20110204, end: 20110204
  19. PREDNISOLONE [Concomitant]
     Dosage: DOSE FORM: PERORAL AGENT
     Route: 048
     Dates: start: 20110412, end: 20110418
  20. PREDNISOLONE [Concomitant]
     Dosage: DOSE FORM: PERORAL AGENT
     Route: 048
     Dates: start: 20110405, end: 20110411
  21. PREDNISOLONE [Concomitant]
     Dosage: DOSE FORM: PERORAL AGENT
     Route: 048
  22. IBRUPROFEN [Concomitant]
     Dosage: DOSE FORM: PERORAL AGENT
     Route: 048
  23. CARTEOLOL HYDROCHLORIDE [Concomitant]
     Dosage: DOSAGE UNCERTAIN
     Route: 047
  24. LATANOPROST [Concomitant]
     Dosage: DOSAGE UNCERTAIN
     Route: 047
  25. FAMOTIDINE [Concomitant]
     Dosage: DOSE FORM: PERORAL AGENT
     Route: 048
  26. POLARAMINE [Concomitant]
     Route: 048
     Dates: start: 20110216, end: 20110219

REACTIONS (3)
  - PYREXIA [None]
  - C-REACTIVE PROTEIN INCREASED [None]
  - INFUSION RELATED REACTION [None]
